FAERS Safety Report 9969411 (Version 3)
Quarter: 2015Q1

REPORT INFORMATION
  Report Type: Report from Study
  Country: DE (occurrence: DE)
  Receive Date: 20140306
  Receipt Date: 20150310
  Transmission Date: 20150721
  Serious: Yes (Other)
  Sender: FDA-Public Use
  Company Number: DE-ROCHE-1344045

PATIENT
  Age: 77 Year
  Sex: Male
  Weight: 97 kg

DRUGS (9)
  1. INSULIN [Concomitant]
     Active Substance: INSULIN NOS
     Indication: DIABETES MELLITUS
     Route: 065
     Dates: start: 2011
  2. ASS100 [Concomitant]
     Active Substance: PENTOXIFYLLINE
     Route: 065
     Dates: start: 2011
  3. CARVEDILOL. [Concomitant]
     Active Substance: CARVEDILOL
     Route: 065
     Dates: start: 2011
  4. CAPECITABINE. [Suspect]
     Active Substance: CAPECITABINE
     Indication: COLORECTAL CANCER
     Dosage: DOSAGES BETWEEN 3500 MG AND 6300 MG
     Route: 065
     Dates: start: 20130524, end: 20140213
  5. SIMVASTATIN. [Concomitant]
     Active Substance: SIMVASTATIN
     Route: 065
     Dates: start: 2011
  6. BEVACIZUMAB [Suspect]
     Active Substance: BEVACIZUMAB
     Indication: COLORECTAL CANCER
     Route: 042
     Dates: start: 20130524
  7. RAMILICH [Concomitant]
     Active Substance: RAMIPRIL
     Route: 065
     Dates: start: 2011
  8. L-THYROXIN 75 [Concomitant]
     Active Substance: LEVOTHYROXINE
     Route: 065
     Dates: start: 2011
  9. PROTAPHANE [Concomitant]
     Active Substance: INSULIN HUMAN
     Route: 065
     Dates: start: 2011

REACTIONS (2)
  - Ileus [Recovering/Resolving]
  - Incisional hernia [Recovered/Resolved]

NARRATIVE: CASE EVENT DATE: 20140201
